FAERS Safety Report 9647415 (Version 1)
Quarter: 2013Q4

REPORT INFORMATION
  Report Type: Spontaneous
  Country: TR (occurrence: TR)
  Receive Date: 20131028
  Receipt Date: 20131028
  Transmission Date: 20140711
  Serious: Yes (Death, Other)
  Sender: FDA-Public Use
  Company Number: PHHY2013TR117523

PATIENT
  Age: 39 Year
  Sex: Female

DRUGS (4)
  1. OLANZAPINE [Suspect]
     Indication: BIPOLAR DISORDER
  2. METRONIDAZOLE [Suspect]
     Indication: CENTRAL NERVOUS SYSTEM ABSCESS
  3. VORICONAZOLE [Suspect]
     Indication: CENTRAL NERVOUS SYSTEM ABSCESS
  4. LITHIUM [Suspect]
     Indication: BIPOLAR DISORDER
     Dosage: 900 MG, PER DAY

REACTIONS (20)
  - Cardiac arrest [Fatal]
  - Grand mal convulsion [Recovering/Resolving]
  - Myoclonic epilepsy [Recovering/Resolving]
  - Confusional state [Unknown]
  - Dysphagia [Unknown]
  - Unresponsive to stimuli [Unknown]
  - Neologism [Unknown]
  - Hyporeflexia [Unknown]
  - Body temperature increased [Unknown]
  - Hypopnoea [Recovering/Resolving]
  - Leukocytosis [Unknown]
  - Anaemia [Unknown]
  - Speech disorder [Unknown]
  - Somnolence [Unknown]
  - Hepatic enzyme increased [Unknown]
  - Cardiotoxicity [Recovering/Resolving]
  - Atrioventricular block [Recovering/Resolving]
  - Hypotension [Recovering/Resolving]
  - Bradycardia [Recovering/Resolving]
  - Toxicity to various agents [Unknown]
